FAERS Safety Report 8819932 (Version 2)
Quarter: 2012Q4

REPORT INFORMATION
  Report Type: 
  Country: US (occurrence: US)
  Receive Date: 20121001
  Receipt Date: 20121022
  Transmission Date: 20130627
  Serious: Yes (Hospitalization)
  Sender: FDA-Public Use
  Company Number: US-ALEXION PHARMACEUTICALS INC.-A201201821

PATIENT
  Sex: Female
  Weight: 63.9 kg

DRUGS (9)
  1. SOLIRIS 300MG [Suspect]
     Indication: HAEMOLYTIC URAEMIC SYNDROME
     Dosage: UNK, q2w
     Route: 042
  2. ANTIHYPERTENSIVES [Concomitant]
  3. METOPROLOL [Concomitant]
     Dosage: 50 mg, qd
     Route: 048
  4. ACYCLOVIR [Concomitant]
     Dosage: 100 mg, qd
     Route: 048
  5. FAMOTIDINE [Concomitant]
     Dosage: 40 mg, UNK
     Route: 048
  6. CELEXA [Concomitant]
     Indication: DEPRESSION
     Dosage: 20 mg, tid
     Route: 048
  7. FOLIC ACID [Concomitant]
     Dosage: 1 mg, qd
     Route: 048
  8. TRAZODONE [Concomitant]
     Dosage: 50 mg, 1-2 qhs
     Route: 048
  9. GABAPENTIN [Concomitant]
     Indication: HEADACHE
     Dosage: 600 mg, 1-2 qd
     Route: 048

REACTIONS (3)
  - Convulsion [Recovered/Resolved]
  - Hypotension [Recovered/Resolved]
  - Syncope [Recovered/Resolved]
